FAERS Safety Report 6192214-8 (Version None)
Quarter: 2009Q2

REPORT INFORMATION
  Report Type: 
  Country: None (occurrence: None)
  Receive Date: 20090515
  Receipt Date: 20090507
  Transmission Date: 20091009
  Serious: Yes (Hospitalization, Other)
  Sender: FDA-Public Use
  Company Number: US-PFIZER INC-2009213739

PATIENT
  Sex: Female

DRUGS (4)
  1. CHANTIX [Suspect]
     Dosage: UNK
     Dates: start: 20090401, end: 20090427
  2. IBUPROFEN [Concomitant]
     Dosage: UNK
  3. PHENTERMINE [Concomitant]
     Dosage: UNK
  4. ALDARA [Concomitant]
     Dosage: UNK

REACTIONS (2)
  - CONTUSION [None]
  - PLATELET COUNT DECREASED [None]
